FAERS Safety Report 11211104 (Version 3)
Quarter: 2016Q4

REPORT INFORMATION
  Report Type: Report from Study
  Country: US (occurrence: US)
  Receive Date: 20150623
  Receipt Date: 20161005
  Transmission Date: 20170206
  Serious: Yes (Hospitalization, Other)
  Sender: FDA-Public Use
  Company Number: US-ROCHE-1549783

PATIENT
  Age: 42 Year
  Sex: Female
  Weight: 47.9 kg

DRUGS (5)
  1. FENTANYL TRANSDERMAL SYSTEM [Suspect]
     Active Substance: FENTANYL
     Indication: OVARIAN CANCER
     Dosage: 100MCG/HR TRANSDERMAL FILM, EXTENDED RELEASE
     Route: 062
  2. CARBOPLATIN. [Suspect]
     Active Substance: CARBOPLATIN
     Indication: OVARIAN CANCER
     Dosage: LAST DOSE PRIOR TO SAE ON 22/JAN/2015
     Route: 042
     Dates: start: 20141121
  3. BEVACIZUMAB [Suspect]
     Active Substance: BEVACIZUMAB
     Indication: OVARIAN CANCER
     Dosage: LAST DOSE PRIOR TO SAE ON 22/JAN/2015
     Route: 042
     Dates: start: 20141121
  4. PACLITAXEL. [Suspect]
     Active Substance: PACLITAXEL
     Indication: OVARIAN CANCER
     Dosage: LAST DOSE PRIOR TO SAE ON 22/JAN/2015
     Route: 042
     Dates: start: 20141121
  5. VELIPARIB [Suspect]
     Active Substance: VELIPARIB
     Indication: OVARIAN CANCER
     Dosage: LAST DOSE PRIOR TO SAE ON 26/JAN/2015
     Route: 048
     Dates: start: 20141119

REACTIONS (10)
  - Abdominal pain [Recovered/Resolved]
  - Abdominal pain [Unknown]
  - Neutrophil count decreased [Unknown]
  - Abdominal pain [Unknown]
  - Small intestinal obstruction [Unknown]
  - Large intestinal obstruction [Unknown]
  - Small intestinal obstruction [Unknown]
  - Platelet count decreased [Unknown]
  - Constipation [Recovered/Resolved]
  - Constipation [Unknown]

NARRATIVE: CASE EVENT DATE: 20150122
